FAERS Safety Report 8529703-4 (Version None)
Quarter: 2012Q3

REPORT INFORMATION
  Report Type: 
  Country: None (occurrence: None)
  Receive Date: 20120717
  Receipt Date: 20120717
  Transmission Date: 20120928
  Serious: No
  Sender: FDA-Public Use
  Company Number: None

PATIENT

DRUGS (2)
  1. INSULIN ASPART NOVO RAPID PENFILL [Suspect]
  2. NOVOLOG MIX 70/30 [Suspect]
     Dosage: NOVO NORDISK INC.

REACTIONS (3)
  - DRUG DISPENSING ERROR [None]
  - PRODUCT LABEL ISSUE [None]
  - MEDICATION ERROR [None]
